FAERS Safety Report 7610790-2 (Version None)
Quarter: 2011Q3

REPORT INFORMATION
  Report Type: 
  Country: None (occurrence: None)
  Receive Date: 20110715
  Receipt Date: 20110704
  Transmission Date: 20111222
  Serious: Yes (Other)
  Sender: FDA-Public Use
  Company Number: PHHY2011DE59948

PATIENT
  Sex: Female
  Weight: 58 kg

DRUGS (1)
  1. ZOMETA [Suspect]
     Indication: BONE DISORDER
     Dosage: 4 MG, PER 5 ML EVERY 4 WEEKS
     Route: 042
     Dates: start: 20100604, end: 20101022

REACTIONS (2)
  - CIRCULATORY COLLAPSE [None]
  - ALOPECIA [None]
